FAERS Safety Report 9000337 (Version 6)
Quarter: 2013Q2

REPORT INFORMATION
  Report Type: Spontaneous
  Country: US (occurrence: US)
  Receive Date: 20130107
  Receipt Date: 20130520
  Transmission Date: 20140414
  Serious: Yes (Disabling, Other)
  Sender: FDA-Public Use
  Company Number: US-009507513-1212USA010645

PATIENT
  Age: 51 Year
  Sex: Male
  Weight: 69.39 kg

DRUGS (11)
  1. VICTRELIS [Suspect]
     Indication: HEPATITIS C
     Dosage: 800 MG, TID
     Route: 048
     Dates: start: 20121220, end: 20130104
  2. PEGASYS [Suspect]
     Indication: HEPATITIS C
     Dosage: 180 MICROGRAM, QW
     Route: 058
     Dates: start: 20121116, end: 20130104
  3. RIBAPAK [Suspect]
     Indication: HEPATITIS C
     Dosage: 1000 MG, QD
     Route: 048
     Dates: start: 20121116, end: 20130104
  4. METFORMIN HYDROCHLORIDE [Concomitant]
     Indication: DIABETES MELLITUS
     Dosage: 500 MG, BID
     Route: 048
     Dates: start: 2009
  5. PRINZIDE [Concomitant]
     Indication: HYPERTENSION
     Dosage: 40/25, MG QD
     Route: 048
     Dates: start: 2009
  6. PIROXICAM [Concomitant]
     Dosage: 20 MG, PRN
     Route: 048
     Dates: start: 2010
  7. AMLODIPINE [Concomitant]
     Dosage: 5 MG, QD
     Route: 048
     Dates: start: 2012, end: 2012
  8. ACTOPLUS MET [Concomitant]
     Dosage: STRENGTH: 500/15 (UNIT NOT REPORTED), 1 BID ALSO REPORTED AS TOTAL DAILY DOSE 500/15
     Route: 048
     Dates: start: 2012
  9. ASPIRIN [Concomitant]
     Dosage: 81 MG, QD
     Route: 048
  10. VITAMINS (UNSPECIFIED) [Concomitant]
     Dosage: 1 DF, QD
     Route: 048
  11. VITAMIN D (UNSPECIFIED) [Concomitant]
     Dosage: 2 DF, QD

REACTIONS (7)
  - IIIrd nerve paralysis [Not Recovered/Not Resolved]
  - Dizziness [Not Recovered/Not Resolved]
  - Headache [Not Recovered/Not Resolved]
  - Vision blurred [Not Recovered/Not Resolved]
  - Diplopia [Not Recovered/Not Resolved]
  - Dry skin [Unknown]
  - Dysgeusia [Unknown]
